FAERS Safety Report 6729885-0 (Version None)
Quarter: 2010Q2

REPORT INFORMATION
  Report Type: 
  Country: None (occurrence: None)
  Receive Date: 20100512
  Receipt Date: 20100310
  Transmission Date: 20101027
  Serious: Yes (Other)
  Sender: FDA-Public Use
  Company Number: 1000012511

PATIENT

DRUGS (2)
  1. SAVELLA [Suspect]
  2. UNSPECIFIED SSRI [Suspect]

REACTIONS (1)
  - SEROTONIN SYNDROME [None]
